FAERS Safety Report 8880564 (Version 3)
Quarter: 2014Q1

REPORT INFORMATION
  Report Type: Report from Study
  Country: CA (occurrence: CA)
  Receive Date: 20121031
  Receipt Date: 20140220
  Transmission Date: 20141002
  Serious: Yes (Hospitalization)
  Sender: FDA-Public Use
  Company Number: CA-ROCHE-1151027

PATIENT
  Age: 50 Year
  Sex: Female
  Weight: 71.5 kg

DRUGS (10)
  1. TOCILIZUMAB [Suspect]
     Indication: RHEUMATOID ARTHRITIS
     Dosage: 8MG/KG
     Route: 042
     Dates: start: 20120627, end: 20120830
  2. TOCILIZUMAB [Suspect]
     Route: 042
     Dates: start: 20120725
  3. PREDNISONE [Concomitant]
     Route: 048
     Dates: start: 20071024
  4. PANTOPRAZOL [Concomitant]
  5. AVAPRO [Concomitant]
     Route: 065
     Dates: start: 2009
  6. FOLIC ACID [Concomitant]
     Route: 065
     Dates: start: 20081004, end: 201204
  7. ENBREL [Concomitant]
     Route: 065
     Dates: start: 20081118, end: 20091105
  8. HUMIRA [Concomitant]
  9. FLEXERIL (CANADA) [Concomitant]
     Route: 065
     Dates: start: 20091006
  10. SALBUTAMOL [Concomitant]
     Route: 065
     Dates: start: 20111025

REACTIONS (2)
  - Chronic obstructive pulmonary disease [Recovered/Resolved]
  - Drug-induced liver injury [Recovered/Resolved]
